FAERS Safety Report 25086023 (Version 2)
Quarter: 2025Q2

REPORT INFORMATION
  Report Type: Spontaneous
  Country: US (occurrence: US)
  Receive Date: 20250317
  Receipt Date: 20250624
  Transmission Date: 20250716
  Serious: Yes (Other)
  Sender: SANOFI AVENTIS
  Company Number: US-SA-2025SA077847

PATIENT
  Sex: Female
  Weight: 103.64 kg

DRUGS (17)
  1. DUPIXENT [Suspect]
     Active Substance: DUPILUMAB
     Indication: Asthma
     Dosage: 300 MG, QOW
     Route: 058
     Dates: start: 201909
  2. PREDNISONE [Suspect]
     Active Substance: PREDNISONE
     Indication: Pneumonia
     Dosage: 3 MG, QD
  3. PREDNISONE [Suspect]
     Active Substance: PREDNISONE
  4. MONTELUKAST SODIUM [Concomitant]
     Active Substance: MONTELUKAST SODIUM
  5. TRELEGY ELLIPTA [Concomitant]
     Active Substance: FLUTICASONE FUROATE\UMECLIDINIUM BROMIDE\VILANTEROL TRIFENATATE
  6. OMEPRAZOLE [Concomitant]
     Active Substance: OMEPRAZOLE
  7. VITAMIN D2 [Concomitant]
     Active Substance: ERGOCALCIFEROL
  8. LEVALBUTEROL HYDROCHLORIDE [Concomitant]
     Active Substance: LEVALBUTEROL HYDROCHLORIDE
  9. DILTIAZEM [Concomitant]
     Active Substance: DILTIAZEM
  10. HYDROCHLOROTHIAZIDE\LOSARTAN [Concomitant]
     Active Substance: HYDROCHLOROTHIAZIDE\LOSARTAN
  11. BENZONATATE [Concomitant]
     Active Substance: BENZONATATE
  12. Ester-c [Concomitant]
  13. ECOTRIN [Concomitant]
     Active Substance: ASPIRIN
  14. ELIQUIS [Concomitant]
     Active Substance: APIXABAN
  15. TYLENOL [Concomitant]
     Active Substance: ACETAMINOPHEN
  16. TRAMADOL HCL [Concomitant]
     Active Substance: TRAMADOL HYDROCHLORIDE
  17. OXYCODONE HYDROCHLORIDE [Concomitant]
     Active Substance: OXYCODONE HYDROCHLORIDE

REACTIONS (5)
  - Pneumonia [Unknown]
  - Nasopharyngitis [Unknown]
  - Secretion discharge [Unknown]
  - Cough [Unknown]
  - Asthma [Unknown]

NARRATIVE: CASE EVENT DATE: 20250101
